FAERS Safety Report 9565749 (Version 2)
Quarter: 2013Q4

REPORT INFORMATION
  Report Type: Spontaneous
  Country: US (occurrence: US)
  Receive Date: 20130930
  Receipt Date: 20131014
  Transmission Date: 20140711
  Serious: Yes (Death)
  Sender: FDA-Public Use
  Company Number: US-GLAXOSMITHKLINE-A1043287A

PATIENT
  Age: 86 Year
  Sex: Male

DRUGS (3)
  1. ADVAIR [Suspect]
     Indication: ASTHMA
     Route: 055
  2. ANTIHYPERTENSIVE [Concomitant]
  3. PROPECIA [Concomitant]

REACTIONS (1)
  - Aortic aneurysm [Fatal]
